FAERS Safety Report 14096361 (Version 4)
Quarter: 2019Q2

REPORT INFORMATION
  Report Type: Spontaneous
  Country: US (occurrence: US)
  Receive Date: 20171017
  Receipt Date: 20190627
  Transmission Date: 20190711
  Serious: No
  Sender: FDA-Public Use
  Company Number: PHEH2017US032933

PATIENT
  Sex: Female

DRUGS (2)
  1. DEXMETHYLPHENIDATE HYDROCHLORIDE. [Suspect]
     Active Substance: DEXMETHYLPHENIDATE HYDROCHLORIDE
     Indication: PRODUCT USED FOR UNKNOWN INDICATION
     Dosage: UNK
     Route: 065
  2. FOCALIN XR [Suspect]
     Active Substance: DEXMETHYLPHENIDATE HYDROCHLORIDE
     Indication: PRODUCT USED FOR UNKNOWN INDICATION
     Dosage: 40 MG, UNK
     Route: 065

REACTIONS (10)
  - Hyperaesthesia [Unknown]
  - Injury [Unknown]
  - Abdominal pain upper [Unknown]
  - Feeling jittery [Unknown]
  - Insomnia [Unknown]
  - Drug ineffective [Unknown]
  - Bladder discomfort [Unknown]
  - Malaise [Unknown]
  - Movement disorder [Unknown]
  - Musculoskeletal stiffness [Unknown]
